FAERS Safety Report 12818285 (Version 1)
Quarter: 2016Q4

REPORT INFORMATION
  Report Type: Spontaneous
  Country: US (occurrence: US)
  Receive Date: 20161005
  Receipt Date: 20161005
  Transmission Date: 20170207
  Serious: Yes (Death)
  Sender: FDA-Public Use
  Company Number: US-HAEMONETICS CORP-1058040

PATIENT
  Age: 60 Year
  Sex: Male
  Weight: 54.3 kg

DRUGS (1)
  1. CP2D AND AS-3 NUTRICEL [Suspect]
     Active Substance: ADENINE\CITRIC ACID MONOHYDRATE\DEXTROSE\SODIUM CHLORIDE\SODIUM CITRATE\SODIUM PHOSPHATE
     Indication: THALASSAEMIA
     Route: 042
     Dates: start: 20160903, end: 20160903

REACTIONS (5)
  - Sepsis [Fatal]
  - Respiratory distress [None]
  - Renal failure [None]
  - Disseminated intravascular coagulation [None]
  - Pseudomonas test positive [None]

NARRATIVE: CASE EVENT DATE: 20160906
